FAERS Safety Report 6023410-8 (Version None)
Quarter: 2008Q4

REPORT INFORMATION
  Report Type: 
  Country: None (occurrence: None)
  Receive Date: 20081230
  Receipt Date: 20081223
  Transmission Date: 20090506
  Serious: Yes (Other)
  Sender: FDA-Public Use
  Company Number: US-GENENTECH-271234

PATIENT
  Sex: Male
  Weight: 82.54 kg

DRUGS (1)
  1. RITUXAN [Suspect]
     Indication: CRYOGLOBULINAEMIA
     Dosage: 375 MG/M2, 1/WEEK
     Route: 042
     Dates: start: 20081020

REACTIONS (1)
  - TUBERCULIN TEST POSITIVE [None]
